FAERS Safety Report 13285314 (Version 2)
Quarter: 2017Q1

REPORT INFORMATION
  Report Type: Report from Study
  Country: US (occurrence: US)
  Receive Date: 20170301
  Receipt Date: 20170303
  Transmission Date: 20170428
  Serious: Yes (Other)
  Sender: FDA-Public Use
  Company Number: US-JNJFOC-20170225316

PATIENT
  Sex: Male

DRUGS (1)
  1. STELARA [Suspect]
     Active Substance: USTEKINUMAB
     Indication: CROHN^S DISEASE
     Route: 058
     Dates: start: 20161202

REACTIONS (6)
  - Weight decreased [Unknown]
  - Fatigue [Unknown]
  - Malaise [Unknown]
  - Ocular hyperaemia [Unknown]
  - Eye infection [Unknown]
  - Influenza [Unknown]

NARRATIVE: CASE EVENT DATE: 20161202
